FAERS Safety Report 17840954 (Version 3)
Quarter: 2021Q1

REPORT INFORMATION
  Report Type: Spontaneous
  Country: BE (occurrence: BE)
  Receive Date: 20200529
  Receipt Date: 20210104
  Transmission Date: 20210419
  Serious: Yes (Death, Hospitalization)
  Sender: FDA-Public Use
  Company Number: BE-ROCHE-2610264

PATIENT
  Age: 81 Year
  Sex: Female
  Weight: 72 kg

DRUGS (1)
  1. ROACTEMRA [Suspect]
     Active Substance: TOCILIZUMAB
     Indication: CORONAVIRUS INFECTION
     Dosage: 20 MG/ML SOL. PERF IV FLACON?MOST RECENT DOSE PRIOR TO AE 01/APR/2020
     Route: 042
     Dates: start: 20200401

REACTIONS (8)
  - Asthenia [Unknown]
  - Colectomy [Unknown]
  - Off label use [Unknown]
  - Melaena [Unknown]
  - Colitis [Unknown]
  - Intentional product use issue [Unknown]
  - Respiratory distress [Fatal]
  - Colitis ischaemic [Unknown]

NARRATIVE: CASE EVENT DATE: 20200417
